FAERS Safety Report 24581128 (Version 1)
Quarter: 2024Q4

REPORT INFORMATION
  Report Type: Spontaneous
  Country: DK (occurrence: DK)
  Receive Date: 20241105
  Receipt Date: 20241105
  Transmission Date: 20250115
  Serious: Yes (Other)
  Sender: VIIV
  Company Number: None

PATIENT

DRUGS (1)
  1. DOVATO [Suspect]
     Active Substance: DOLUTEGRAVIR SODIUM\LAMIVUDINE
     Indication: HIV infection
     Dosage: 1 DF, QD
     Route: 048
     Dates: start: 20220103, end: 20240506

REACTIONS (9)
  - Mental impairment [Recovering/Resolving]
  - Nervous system disorder [Unknown]
  - Neurological symptom [Unknown]
  - Fatigue [Not Recovered/Not Resolved]
  - Feeling abnormal [Recovered/Resolved]
  - Myalgia [Not Recovered/Not Resolved]
  - Muscle spasms [Unknown]
  - Memory impairment [Unknown]
  - Depressed mood [Recovering/Resolving]

NARRATIVE: CASE EVENT DATE: 20220103
